FAERS Safety Report 5299623-X (Version None)
Quarter: 2007Q2

REPORT INFORMATION
  Report Type: 
  Country: None (occurrence: None)
  Receive Date: 20070417
  Receipt Date: 20070411
  Transmission Date: 20071010
  Serious: Yes (Hospitalization)
  Sender: FDA-Public Use
  Company Number: CO-BOEHRINGER INGELHEIM PHARMACEUTICALS, INC.-2007-BP-04958CL

PATIENT
  Sex: Male
  Weight: 60 kg

DRUGS (4)
  1. SECOTEX CAPSULES [Suspect]
     Indication: BENIGN PROSTATIC HYPERPLASIA
     Route: 048
     Dates: start: 20070106, end: 20070123
  2. LOSARTAN POSTASSIUM [Concomitant]
     Dates: start: 20050101
  3. FUROSEMIDA [Concomitant]
     Dates: start: 20050101
  4. AMIODARONA [Concomitant]

REACTIONS (3)
  - CARDIAC FAILURE CONGESTIVE [None]
  - HYPOTENSION [None]
  - URINARY RETENTION [None]
